FAERS Safety Report 10199316 (Version 2)
Quarter: 2014Q2

REPORT INFORMATION
  Report Type: Report from Study
  Country: US (occurrence: US)
  Receive Date: 20140527
  Receipt Date: 20140527
  Transmission Date: 20141212
  Serious: Yes (Other)
  Sender: FDA-Public Use
  Company Number: PHEH2014US005679

PATIENT
  Sex: Female

DRUGS (4)
  1. DIOVAN [Suspect]
     Dosage: 80 MG, QD
     Route: 048
  2. COMBIVENT [Suspect]
     Dosage: UNK UKN, UNK
  3. FLOVENT [Concomitant]
     Dosage: UNK UKN, UNK
  4. VENTOLIN                           /00942701/ [Concomitant]
     Dosage: UNK UKN, UNK

REACTIONS (9)
  - Glaucoma [Unknown]
  - Blindness [Unknown]
  - Lung disorder [Unknown]
  - Dyspnoea [Unknown]
  - Concomitant disease aggravated [Unknown]
  - Depression [Unknown]
  - Stress [Unknown]
  - Headache [Unknown]
  - Abdominal pain upper [Unknown]
